FAERS Safety Report 4533722-2 (Version None)
Quarter: 2004Q4

REPORT INFORMATION
  Report Type: 
  Country: None (occurrence: None)
  Receive Date: 20041221
  Receipt Date: 20041210
  Transmission Date: 20050328
  Serious: Yes (Other)
  Sender: FDA-Public Use
  Company Number: FR-GLAXOSMITHKLINE-B0360264A

PATIENT
  Age: 44 Year
  Sex: Female

DRUGS (5)
  1. ZELITREX [Suspect]
     Indication: HERPES SIMPLEX
     Dosage: 500MG SIX TIMES PER DAY
     Route: 048
     Dates: start: 20041101
  2. TEGRETOL [Concomitant]
     Indication: BIPOLAR I DISORDER
     Dosage: 200MG TWICE PER DAY
     Route: 048
  3. LEVOTHYROX [Concomitant]
     Indication: BIPOLAR I DISORDER
     Dosage: 75MCG PER DAY
  4. TERCIAN [Concomitant]
     Indication: BIPOLAR I DISORDER
     Dosage: 25MG TWICE PER DAY
  5. SURMONTIL [Concomitant]
     Indication: BIPOLAR I DISORDER
     Dosage: 18DROP PER DAY

REACTIONS (4)
  - DELIRIUM [None]
  - FATIGUE [None]
  - MEDICATION ERROR [None]
  - PARANOIA [None]
